FAERS Safety Report 23462924 (Version 1)
Quarter: 2024Q1

REPORT INFORMATION
  Report Type: Spontaneous
  Country: US (occurrence: US)
  Receive Date: 20240131
  Receipt Date: 20240131
  Transmission Date: 20240410
  Serious: No
  Sender: FDA-Public Use
  Company Number: US-PFIZER INC-202400029362

PATIENT
  Age: 52 Year
  Sex: Female

DRUGS (11)
  1. XELJANZ [Suspect]
     Active Substance: TOFACITINIB CITRATE
     Dosage: 5 MG, 2X/DAY
  2. MOUNJARO [Concomitant]
     Active Substance: TIRZEPATIDE
  3. CLONAZEPAM [Concomitant]
     Active Substance: CLONAZEPAM
  4. FOLIC ACID [Concomitant]
     Active Substance: FOLIC ACID
  5. METHOCARBAMOL [Concomitant]
     Active Substance: METHOCARBAMOL
  6. COLLAGEN [Concomitant]
     Active Substance: COLLAGEN
     Dosage: 125-740MG
  7. NALTREXONE HYDROCHLORIDE [Concomitant]
     Active Substance: NALTREXONE HYDROCHLORIDE
  8. VITAMIN B12 [Concomitant]
     Active Substance: CYANOCOBALAMIN
  9. CYCLOBENZAPRINE HYDROCHLORIDE [Concomitant]
     Active Substance: CYCLOBENZAPRINE HYDROCHLORIDE
  10. BIOTIN [Concomitant]
     Active Substance: BIOTIN
     Indication: Alopecia
  11. NAPROXEN [Concomitant]
     Active Substance: NAPROXEN

REACTIONS (1)
  - White blood cell count increased [Recovering/Resolving]
